FAERS Safety Report 7714047-0 (Version None)
Quarter: 2011Q3

REPORT INFORMATION
  Report Type: 
  Country: None (occurrence: None)
  Receive Date: 20110826
  Receipt Date: 20110817
  Transmission Date: 20111222
  Serious: Yes (Other)
  Sender: FDA-Public Use
  Company Number: US-ASTRAZENECA-2010SE24654

PATIENT
  Age: 56 Year
  Sex: Female

DRUGS (3)
  1. NEXIUM [Suspect]
     Route: 048
  2. VICODIN [Concomitant]
  3. VALIUM [Concomitant]

REACTIONS (7)
  - ROAD TRAFFIC ACCIDENT [None]
  - PAIN IN JAW [None]
  - TRISMUS [None]
  - HEAD INJURY [None]
  - GASTROOESOPHAGEAL REFLUX DISEASE [None]
  - DRUG DOSE OMISSION [None]
  - TEMPOROMANDIBULAR JOINT SYNDROME [None]
